FAERS Safety Report 21423522 (Version 1)
Quarter: 2022Q4

REPORT INFORMATION
  Report Type: Spontaneous
  Country: US (occurrence: US)
  Receive Date: 20221007
  Receipt Date: 20221007
  Transmission Date: 20230113
  Serious: Yes (Other)
  Sender: FDA-Public Use
  Company Number: US-MYLANLABS-2022M1111333

PATIENT
  Age: 17 Year

DRUGS (4)
  1. CASPOFUNGIN [Suspect]
     Active Substance: CASPOFUNGIN
     Indication: Systemic candida
     Dosage: UNK
     Route: 042
  2. AMPHOTERICIN B [Suspect]
     Active Substance: AMPHOTERICIN B
     Indication: Systemic candida
     Dosage: UNK
     Route: 065
  3. MICAFUNGIN [Suspect]
     Active Substance: MICAFUNGIN
     Indication: Systemic candida
     Dosage: UNK
     Route: 014
  4. MICAFUNGIN [Suspect]
     Active Substance: MICAFUNGIN
     Indication: Systemic candida
     Dosage: UNK
     Route: 065

REACTIONS (1)
  - Drug ineffective [Unknown]
